FAERS Safety Report 5825383-7 (Version None)
Quarter: 2008Q3

REPORT INFORMATION
  Report Type: 
  Country: None (occurrence: None)
  Receive Date: 20080725
  Receipt Date: 20080725
  Transmission Date: 20090109
  Serious: Yes (Hospitalization)
  Sender: FDA-Public Use
  Company Number: None

PATIENT
  Age: 67 Year
  Sex: Female

DRUGS (2)
  1. AVASTIN [Suspect]
     Indication: BREAST CANCER
     Dates: start: 20070401, end: 20080615
  2. ABRAXANE [Concomitant]

REACTIONS (5)
  - CEREBRAL HAEMORRHAGE [None]
  - CONVULSION [None]
  - DYSPHAGIA [None]
  - INCOHERENT [None]
  - RENAL IMPAIRMENT [None]
